FAERS Safety Report 11175128 (Version 8)
Quarter: 2015Q4

REPORT INFORMATION
  Report Type: Spontaneous
  Country: IL (occurrence: IL)
  Receive Date: 20150609
  Receipt Date: 20151221
  Transmission Date: 20160304
  Serious: Yes (Hospitalization, Other)
  Sender: FDA-Public Use
  Company Number: IL-ABBVIE-15P-082-1401092-00

PATIENT
  Age: 74 Year
  Sex: Female

DRUGS (4)
  1. RAMIPRIL. [Concomitant]
     Active Substance: RAMIPRIL
     Indication: PRODUCT USED FOR UNKNOWN INDICATION
     Route: 048
  2. VIEKIRAX [Suspect]
     Active Substance: OMBITASVIR\PARITAPREVIR\RITONAVIR
     Indication: HEPATITIS C
     Route: 048
     Dates: start: 20150301, end: 20150322
  3. TRITACE [Concomitant]
     Active Substance: RAMIPRIL
     Indication: PRODUCT USED FOR UNKNOWN INDICATION
  4. EXVIERA [Suspect]
     Active Substance: DASABUVIR
     Indication: HEPATITIS C
     Route: 048
     Dates: start: 20150301, end: 20150322

REACTIONS (18)
  - Ascites [Unknown]
  - Asthenia [Unknown]
  - Dyspnoea [Unknown]
  - Vomiting [Not Recovered/Not Resolved]
  - Hepatic failure [Unknown]
  - Burning sensation [Unknown]
  - Chromaturia [Unknown]
  - Hepatic cirrhosis [Unknown]
  - Oedema peripheral [Unknown]
  - Respiratory tract inflammation [Unknown]
  - Pyrexia [Unknown]
  - Chills [Unknown]
  - Blood bilirubin increased [Unknown]
  - Hepatic neoplasm [Unknown]
  - Drug-induced liver injury [Unknown]
  - Portal hypertension [Unknown]
  - Ocular icterus [Unknown]
  - Dyspnoea [Unknown]

NARRATIVE: CASE EVENT DATE: 20150322
